FAERS Safety Report 14101487 (Version 1)
Quarter: 2017Q4

REPORT INFORMATION
  Report Type: Spontaneous
  Country: US (occurrence: US)
  Receive Date: 20171017
  Receipt Date: 20171017
  Transmission Date: 20180321
  Serious: Yes (Life-Threatening, Hospitalization, Disabling)
  Sender: FDA-Public Use
  Company Number: None

PATIENT
  Sex: Female
  Weight: 63 kg

DRUGS (1)
  1. EMSAM [Suspect]
     Active Substance: SELEGILINE
     Indication: BIPOLAR DISORDER
     Dosage: QUANTITY:1 PATCH(ES);?
     Route: 062
     Dates: start: 20161129, end: 20161211

REACTIONS (14)
  - Blindness [None]
  - Impaired driving ability [None]
  - Fall [None]
  - Muscle spasms [None]
  - Sensory loss [None]
  - Hypoaesthesia [None]
  - Migraine [None]
  - Quality of life decreased [None]
  - Headache [None]
  - Muscle twitching [None]
  - Serotonin syndrome [None]
  - Throat tightness [None]
  - Musculoskeletal disorder [None]
  - Weight decreased [None]

NARRATIVE: CASE EVENT DATE: 20161212
